FAERS Safety Report 18709430 (Version 3)
Quarter: 2021Q1

REPORT INFORMATION
  Report Type: Spontaneous
  Country: US (occurrence: US)
  Receive Date: 20210106
  Receipt Date: 20210227
  Transmission Date: 20210419
  Serious: Yes (Other)
  Sender: FDA-Public Use
  Company Number: US-TAKEDA-2021TUS000486

PATIENT
  Sex: Male
  Weight: 73 kg

DRUGS (17)
  1. GAMMAGARD LIQUID [Suspect]
     Active Substance: HUMAN IMMUNOGLOBULIN G
     Indication: HYPOGAMMAGLOBULINAEMIA
  2. OFEV [Concomitant]
     Active Substance: NINTEDANIB
  3. TRAMADOL. [Concomitant]
     Active Substance: TRAMADOL
  4. MULTIVITAMIN [Concomitant]
     Active Substance: VITAMINS
  5. ATORVASTATIN [Concomitant]
     Active Substance: ATORVASTATIN
  6. NEXIUM I.V. [Concomitant]
     Active Substance: ESOMEPRAZOLE SODIUM
  7. MELOXICAM. [Concomitant]
     Active Substance: MELOXICAM
  8. GAMMAGARD LIQUID [Suspect]
     Active Substance: HUMAN IMMUNOGLOBULIN G
     Indication: IDIOPATHIC PULMONARY FIBROSIS
     Dosage: 30 GRAM, Q4WEEKS
     Route: 042
     Dates: start: 20170103
  9. MUCINEX [Concomitant]
     Active Substance: GUAIFENESIN
  10. SUDAFED CO [Concomitant]
  11. DIPHENHYDRAMINE. [Concomitant]
     Active Substance: DIPHENHYDRAMINE
  12. LIDOCAINE. [Concomitant]
     Active Substance: LIDOCAINE
  13. METOCLOPRAMIDE. [Concomitant]
     Active Substance: METOCLOPRAMIDE
  14. VENTOLIN [Concomitant]
     Active Substance: ALBUTEROL SULFATE
  15. SODIUM CHLORIDE. [Concomitant]
     Active Substance: SODIUM CHLORIDE
  16. ACETAMINOPHEN. [Concomitant]
     Active Substance: ACETAMINOPHEN
  17. EPINEPHRINE. [Concomitant]
     Active Substance: EPINEPHRINE

REACTIONS (4)
  - Chest pain [Unknown]
  - Nausea [Recovered/Resolved]
  - Rheumatoid arthritis [Unknown]
  - Abdominal discomfort [Unknown]
